FAERS Safety Report 11631883 (Version 1)
Quarter: 2015Q4

REPORT INFORMATION
  Report Type: Spontaneous
  Country: US (occurrence: None)
  Receive Date: 20151013
  Receipt Date: 20151013
  Transmission Date: 20160304
  Serious: No
  Sender: FDA-Public Use
  Company Number: None

PATIENT
  Age: 64 Year
  Sex: Female
  Weight: 68.04 kg

DRUGS (7)
  1. CALCIUM [Concomitant]
     Active Substance: CALCIUM
  2. ASPIRIN. [Concomitant]
     Active Substance: ASPIRIN
  3. VOLTAREN GENERIC [Concomitant]
  4. CLOBETASOL OINTMENT [Concomitant]
     Active Substance: CLOBETASOL
  5. GABAPENTIN. [Suspect]
     Active Substance: GABAPENTIN
     Indication: DIABETIC NEUROPATHY
     Dosage: TAKEN BY MOUTH
     Dates: start: 20151010, end: 20151010
  6. TYLENOL [Concomitant]
     Active Substance: ACETAMINOPHEN
  7. VITAMIN D [Concomitant]
     Active Substance: CHOLECALCIFEROL

REACTIONS (7)
  - Headache [None]
  - Ear pain [None]
  - Flatulence [None]
  - Abdominal pain [None]
  - Nausea [None]
  - Blood glucose fluctuation [None]
  - Unevaluable event [None]

NARRATIVE: CASE EVENT DATE: 20151010
